FAERS Safety Report 12273185 (Version 1)
Quarter: 2016Q2

REPORT INFORMATION
  Report Type: Spontaneous
  Country: US (occurrence: US)
  Receive Date: 20160415
  Receipt Date: 20160415
  Transmission Date: 20160815
  Serious: Yes (Other)
  Sender: FDA-Public Use
  Company Number: US-PRODUCTLIFE GROUP-GTC2013000003

PATIENT
  Age: 27 Year
  Sex: Female

DRUGS (2)
  1. ATRYN [Suspect]
     Active Substance: ANTITHROMBIN ALFA
     Indication: ANTITHROMBIN III DEFICIENCY
     Dosage: NOT SPECIFIED
     Route: 042
  2. ENOXAPARIN [Concomitant]
     Active Substance: ENOXAPARIN
     Indication: ANTICOAGULATION DRUG LEVEL THERAPEUTIC
     Dosage: 1.8 MG/KG, UNK

REACTIONS (4)
  - Venous thrombosis limb [Recovered/Resolved]
  - Deep vein thrombosis [Recovered/Resolved]
  - Exposure during pregnancy [Unknown]
  - Uterine atony [Unknown]
